FAERS Safety Report 6467608-3 (Version None)
Quarter: 2009Q4

REPORT INFORMATION
  Report Type: 
  Country: None (occurrence: None)
  Receive Date: 20091202
  Receipt Date: 20091120
  Transmission Date: 20100525
  Serious: Yes (Death, Hospitalization)
  Sender: FDA-Public Use
  Company Number: NL-WYE-G04943109

PATIENT

DRUGS (1)
  1. RELISTOR [Suspect]
     Dosage: UNKNOWN

REACTIONS (1)
  - INTESTINAL PERFORATION [None]
